FAERS Safety Report 10364161 (Version 1)
Quarter: 2014Q3

REPORT INFORMATION
  Report Type: Spontaneous
  Country: IT (occurrence: IT)
  Receive Date: 20140806
  Receipt Date: 20140806
  Transmission Date: 20150326
  Serious: Yes (Other)
  Sender: FDA-Public Use
  Company Number: IT-ALEXION PHARMACEUTICALS INC.-A201402946

PATIENT

DRUGS (3)
  1. SOLIRIS [Suspect]
     Active Substance: ECULIZUMAB
     Indication: HAEMOLYTIC URAEMIC SYNDROME
     Dosage: 600 MG, QW FOR 2 INFUSIONS
     Route: 042
  2. SOLIRIS [Suspect]
     Active Substance: ECULIZUMAB
     Dosage: 900 MG, UNK
     Route: 042
  3. SOLIRIS [Suspect]
     Active Substance: ECULIZUMAB
     Dosage: 600 MG, Q 12-14 DAYS
     Route: 042

REACTIONS (6)
  - Haemolytic anaemia [Unknown]
  - Hypertensive crisis [Unknown]
  - Pulmonary oedema [Unknown]
  - Respiratory failure [Unknown]
  - Nervous system disorder [Unknown]
  - Blood creatinine increased [Unknown]
